FAERS Safety Report 6912609-1 (Version None)
Quarter: 2010Q3

REPORT INFORMATION
  Report Type: 
  Country: None (occurrence: None)
  Receive Date: 20100806
  Receipt Date: 20080902
  Transmission Date: 20110219
  Serious: No
  Sender: FDA-Public Use
  Company Number: US-PFIZER INC-2008074144

PATIENT
  Sex: Female
  Weight: 170.45 kg

DRUGS (8)
  1. DETROL LA [Suspect]
     Indication: URINARY INCONTINENCE
     Route: 048
     Dates: start: 20080801
  2. ATENOLOL [Concomitant]
  3. LISINOPRIL [Concomitant]
  4. FLUOXETINE [Concomitant]
  5. NIFEDIPINE [Concomitant]
  6. ACETYLSALICYLIC ACID SRT [Concomitant]
  7. VITAMIN TAB [Concomitant]
  8. DITROPAN XL [Concomitant]
     Indication: URINARY INCONTINENCE

REACTIONS (2)
  - FATIGUE [None]
  - URINARY INCONTINENCE [None]
